FAERS Safety Report 11124502 (Version 1)
Quarter: 2015Q2

REPORT INFORMATION
  Report Type: Spontaneous
  Country: IN (occurrence: None)
  Receive Date: 20150518
  Receipt Date: 20150518
  Transmission Date: 20150821
  Serious: Yes (Disabling, Other)
  Sender: FDA-Public Use
  Company Number: 2015JUB00129

PATIENT
  Age: 32 Year
  Sex: Female

DRUGS (1)
  1. CARBAMAZEPINE (CARBAMAZEPINE) UNKNOWN [Suspect]
     Active Substance: CARBAMAZEPINE
     Indication: MENTAL DISORDER

REACTIONS (5)
  - Muscular weakness [None]
  - Vitamin D deficiency [None]
  - Osteomalacia [None]
  - Pain in extremity [None]
  - Abasia [None]
